FAERS Safety Report 5009385-9 (Version None)
Quarter: 2006Q2

REPORT INFORMATION
  Report Type: 
  Country: None (occurrence: None)
  Receive Date: 20060522
  Receipt Date: 20060508
  Transmission Date: 20061013
  Serious: Yes (Hospitalization)
  Sender: FDA-Public Use
  Company Number: 2006-BP-05212RO

PATIENT
  Age: 11 Year
  Sex: Female

DRUGS (4)
  1. METHOTREXATE [Suspect]
     Indication: JUVENILE ARTHRITIS
     Dosage: 25 MG WEEKLY, SC
     Route: 058
  2. ENBREL [Suspect]
     Indication: JUVENILE ARTHRITIS
     Dosage: 25 MG TWICE A WEEK, SC
     Route: 058
  3. PREDNISONE TAB [Suspect]
     Indication: JUVENILE ARTHRITIS
     Dosage: 10 MG DAILY, PO
     Route: 048
  4. NAPROXEN [Concomitant]

REACTIONS (7)
  - ABSCESS [None]
  - ARTHROPOD BITE [None]
  - ERYTHEMA [None]
  - NECROTISING FASCIITIS [None]
  - SEPSIS [None]
  - STAPHYLOCOCCAL INFECTION [None]
  - TENDERNESS [None]
